FAERS Safety Report 17917246 (Version 1)
Quarter: 2020Q2

REPORT INFORMATION
  Report Type: Spontaneous
  Country: US (occurrence: US)
  Receive Date: 20200619
  Receipt Date: 20200619
  Transmission Date: 20200714
  Serious: Yes (Other)
  Sender: FDA-Public Use
  Company Number: None

PATIENT
  Age: 73 Year
  Sex: Male

DRUGS (15)
  1. ASPIRIN. [Concomitant]
     Active Substance: ASPIRIN
  2. TAMSULOSIN [Concomitant]
     Active Substance: TAMSULOSIN
  3. CLOPIDOGREL [Concomitant]
     Active Substance: CLOPIDOGREL BISULFATE
  4. EZETIMIBE. [Concomitant]
     Active Substance: EZETIMIBE
  5. LANTUS [Concomitant]
     Active Substance: INSULIN GLARGINE
  6. MAGNESIUM [Concomitant]
     Active Substance: MAGNESIUM
  7. UBIQUINOL [Concomitant]
     Active Substance: UBIQUINOL
  8. NIFEDIPINE. [Concomitant]
     Active Substance: NIFEDIPINE
  9. OMEGA-3 ACIDS [Concomitant]
     Active Substance: OMEGA-3 FATTY ACIDS
  10. TACROLIMUS. [Concomitant]
     Active Substance: TACROLIMUS
  11. TURMERIC [Concomitant]
     Active Substance: HERBALS\TURMERIC
  12. VEMLIDY [Suspect]
     Active Substance: TENOFOVIR ALAFENAMIDE FUMARATE
     Indication: LIVER TRANSPLANT
     Route: 048
     Dates: start: 20180310
  13. CINNAMON. [Concomitant]
     Active Substance: CINNAMON
  14. VITAMIN D [Concomitant]
     Active Substance: VITAMIN D NOS
  15. NOVOLOG [Concomitant]
     Active Substance: INSULIN ASPART

REACTIONS (1)
  - Cerebrovascular accident [None]

NARRATIVE: CASE EVENT DATE: 20200425
